FAERS Safety Report 9144332 (Version 1)
Quarter: 2013Q1

REPORT INFORMATION
  Report Type: Spontaneous
  Country: GB (occurrence: GB)
  Receive Date: 20130306
  Receipt Date: 20130306
  Transmission Date: 20140127
  Serious: Yes (Hospitalization, Disabling, Congenital Anomaly)
  Sender: FDA-Public Use
  Company Number: GB-ABBOTT-13A-167-1057829-00

PATIENT
  Sex: Male

DRUGS (1)
  1. EPILIM [Suspect]
     Indication: MATERNAL EXPOSURE TIMING UNSPECIFIED
     Route: 064

REACTIONS (15)
  - Premature baby [Unknown]
  - Autism [Unknown]
  - Foetal exposure during pregnancy [Unknown]
  - Neonatal respiratory arrest [Unknown]
  - Congenital nose malformation [Unknown]
  - Dysmorphism [Unknown]
  - Congenital oral malformation [Unknown]
  - Visual tracking test abnormal [Unknown]
  - Poor sucking reflex [Unknown]
  - Myopia [Unknown]
  - Floppy infant [Unknown]
  - Speech disorder [Unknown]
  - Judgement impaired [Unknown]
  - Motor dysfunction [Unknown]
  - Neonatal disorder [Unknown]
